FAERS Safety Report 11308374 (Version 6)
Quarter: 2016Q3

REPORT INFORMATION
  Report Type: Spontaneous
  Country: JP (occurrence: JP)
  Receive Date: 20150724
  Receipt Date: 20160729
  Transmission Date: 20161109
  Serious: Yes (Hospitalization, Other)
  Sender: FDA-Public Use
  Company Number: PHJP2015JP012280

PATIENT
  Age: 80 Year
  Sex: Female

DRUGS (4)
  1. AFINITOR [Suspect]
     Active Substance: EVEROLIMUS
     Indication: BREAST CANCER RECURRENT
     Dosage: 10 MG, QD
     Route: 048
     Dates: start: 20140605, end: 20140723
  2. ERIBULIN MESILATE [Concomitant]
     Active Substance: ERIBULIN
     Indication: PLEURAL EFFUSION
     Dosage: 1.4 MG/M2, UNK
     Route: 065
  3. FULVESTRANT [Concomitant]
     Active Substance: FULVESTRANT
     Indication: CHEST WALL MASS
     Dosage: 500 MG, UNK
     Route: 065
  4. EXEMESTANE. [Suspect]
     Active Substance: EXEMESTANE
     Indication: BREAST CANCER RECURRENT
     Dosage: 25 MG, QD
     Route: 048
     Dates: start: 20140605, end: 201410

REACTIONS (14)
  - Dyspnoea [Recovered/Resolved]
  - Abdominal pain [Unknown]
  - Melaena [Recovered/Resolved]
  - Diarrhoea [Recovered/Resolved]
  - Feeding disorder [Recovering/Resolving]
  - Weight decreased [Unknown]
  - Haematochezia [Recovered/Resolved]
  - Stomatitis [Recovered/Resolved]
  - Malnutrition [Unknown]
  - Interstitial lung disease [Recovered/Resolved]
  - Cough [Recovered/Resolved]
  - Fatigue [Unknown]
  - Pyrexia [Unknown]
  - Haemoglobin decreased [Unknown]

NARRATIVE: CASE EVENT DATE: 20140622
